FAERS Safety Report 10247595 (Version 9)
Quarter: 2015Q3

REPORT INFORMATION
  Report Type: Spontaneous
  Country: US (occurrence: US)
  Receive Date: 20140619
  Receipt Date: 20150901
  Transmission Date: 20151125
  Serious: Yes (Death, Other)
  Sender: FDA-Public Use
  Company Number: US-SA-2014SA078402

PATIENT
  Age: 88 Year
  Sex: Female
  Weight: 56.2 kg

DRUGS (12)
  1. ASPIRIN. [Concomitant]
     Active Substance: ASPIRIN
     Route: 048
  2. BUSPIRONE [Concomitant]
     Active Substance: BUSPIRONE HYDROCHLORIDE
     Route: 048
  3. PROCARDIA XL [Concomitant]
     Active Substance: NIFEDIPINE
     Route: 048
  4. VITAMIN C [Concomitant]
     Active Substance: ASCORBIC ACID
     Route: 048
  5. LEVOXYL [Concomitant]
     Active Substance: LEVOTHYROXINE SODIUM
  6. MEGESTROL [Concomitant]
     Active Substance: MEGESTROL
  7. SELENIUM [Concomitant]
     Active Substance: SELENIUM
  8. NIFEDICAL XL [Concomitant]
     Active Substance: NIFEDIPINE
  9. TRAMADOL. [Concomitant]
     Active Substance: TRAMADOL
     Route: 048
  10. AGGRENOX [Concomitant]
     Active Substance: ASPIRIN\DIPYRIDAMOLE
  11. MEGACE [Concomitant]
     Active Substance: MEGESTROL ACETATE
     Dosage: DOSE:2 TABLESPOON(S)
     Route: 048
  12. PLAVIX [Suspect]
     Active Substance: CLOPIDOGREL BISULFATE
     Indication: ARTERIAL OCCLUSIVE DISEASE
     Route: 048
     Dates: start: 20080612, end: 20080620

REACTIONS (5)
  - Multiple injuries [Unknown]
  - Haemorrhage [Unknown]
  - Drug hypersensitivity [Unknown]
  - Pulmonary embolism [Fatal]
  - Myocardial infarction [Fatal]

NARRATIVE: CASE EVENT DATE: 200806
